FAERS Safety Report 20991002 (Version 1)
Quarter: 2022Q2

REPORT INFORMATION
  Report Type: Spontaneous
  Country: JP (occurrence: JP)
  Receive Date: 20220622
  Receipt Date: 20220622
  Transmission Date: 20220721
  Serious: Yes (Other)
  Sender: FDA-Public Use
  Company Number: JP-CHUGAI-2022023411

PATIENT
  Age: 8 Decade

DRUGS (2)
  1. TECENTRIQ [Suspect]
     Active Substance: ATEZOLIZUMAB
     Indication: Hepatocellular carcinoma
     Dosage: 1200 MILLIGRAM, SINGLE
     Route: 041
     Dates: start: 20220516, end: 20220516
  2. AVASTIN [Suspect]
     Active Substance: BEVACIZUMAB
     Indication: Hepatocellular carcinoma
     Dosage: 825 MILLIGRAM, SINGLE
     Route: 041
     Dates: start: 20220516, end: 20220516

REACTIONS (1)
  - Hepatic encephalopathy [Recovering/Resolving]

NARRATIVE: CASE EVENT DATE: 20220524
